FAERS Safety Report 21235999 (Version 5)
Quarter: 2022Q3

REPORT INFORMATION
  Report Type: Spontaneous
  Country: US (occurrence: US)
  Receive Date: 20220822
  Receipt Date: 20220905
  Transmission Date: 20221027
  Serious: No
  Sender: FDA-Public Use
  Company Number: US-AMGEN-USASP2022139870

PATIENT
  Age: 73 Year
  Sex: Male
  Weight: 78.9 kg

DRUGS (2)
  1. NEULASTA [Suspect]
     Active Substance: PEGFILGRASTIM
     Indication: Neutropenia
     Dosage: UNK
     Route: 065
  2. NEULASTA [Suspect]
     Active Substance: PEGFILGRASTIM
     Dosage: UNK
     Route: 065

REACTIONS (3)
  - Unintentional medical device removal [Unknown]
  - Accidental exposure to product [Unknown]
  - Device adhesion issue [Unknown]

NARRATIVE: CASE EVENT DATE: 20220729
